FAERS Safety Report 6870181-9 (Version None)
Quarter: 2010Q3

REPORT INFORMATION
  Report Type: 
  Country: None (occurrence: None)
  Receive Date: 20100723
  Receipt Date: 20100713
  Transmission Date: 20110219
  Serious: Yes (Hospitalization, Other)
  Sender: FDA-Public Use
  Company Number: US-BIOGENIDEC-2008BI010513

PATIENT
  Age: 48 Year
  Sex: Male
  Weight: 81 kg

DRUGS (3)
  1. TYSABRI [Suspect]
     Indication: MULTIPLE SCLEROSIS
     Route: 042
     Dates: start: 20071126
  2. PAIN MEDICATIONS (NOS) [Concomitant]
     Indication: ARTHRALGIA
  3. PAIN MEDICATIONS (NOS) [Concomitant]
     Indication: BACK PAIN

REACTIONS (4)
  - FATIGUE [None]
  - HYPOAESTHESIA [None]
  - JOINT ADHESION [None]
  - OSTEOARTHRITIS [None]
